FAERS Safety Report 24439439 (Version 1)
Quarter: 2024Q4

REPORT INFORMATION
  Report Type: Spontaneous
  Country: US (occurrence: US)
  Receive Date: 20241015
  Receipt Date: 20241015
  Transmission Date: 20250114
  Serious: No
  Sender: SUNOVION
  Company Number: US-SMPA-2024SPA003494AA

PATIENT

DRUGS (1)
  1. ORGOVYX [Suspect]
     Active Substance: RELUGOLIX
     Dosage: UNKNOWN
     Route: 048

REACTIONS (3)
  - Irritable bowel syndrome [Unknown]
  - Abdominal pain upper [Unknown]
  - Diarrhoea [Unknown]
